FAERS Safety Report 14289831 (Version 1)
Quarter: 2017Q4

REPORT INFORMATION
  Report Type: Spontaneous
  Country: US (occurrence: US)
  Receive Date: 20171215
  Receipt Date: 20171215
  Transmission Date: 20180321
  Serious: Yes (Other)
  Sender: FDA-Public Use
  Company Number: None

PATIENT
  Age: 23 Year
  Sex: Female
  Weight: 65.25 kg

DRUGS (1)
  1. DEXTROAMPHET SACCHARAT, AMPHET ASPARTATE, DEXTROAMPHET SULFATE AND AMPHET SULFAT [Suspect]
     Active Substance: AMPHETAMINE ASPARTATE\AMPHETAMINE SULFATE\DEXTROAMPHETAMINE SACCHARATE\DEXTROAMPHETAMINE SULFATE
     Indication: ATTENTION DEFICIT/HYPERACTIVITY DISORDER
     Dosage: ?          QUANTITY:75 TABLET(S);?
     Route: 048
     Dates: start: 20171201, end: 20171214

REACTIONS (11)
  - Rash [None]
  - Altered visual depth perception [None]
  - Drug ineffective [None]
  - Dizziness [None]
  - Palpitations [None]
  - Dyspnoea [None]
  - Hot flush [None]
  - Disturbance in attention [None]
  - Ill-defined disorder [None]
  - Mood swings [None]
  - Fatigue [None]

NARRATIVE: CASE EVENT DATE: 20171201
